FAERS Safety Report 9009291 (Version 2)
Quarter: 2013Q1

REPORT INFORMATION
  Report Type: Spontaneous
  Country: US (occurrence: US)
  Receive Date: 20130111
  Receipt Date: 20130307
  Transmission Date: 20140127
  Serious: Yes (Hospitalization)
  Sender: FDA-Public Use
  Company Number: US-B.I. PHARMACEUTICALS,INC./RIDGEFIELD-2012-BI-04531BP

PATIENT
  Age: 85 None
  Sex: Male

DRUGS (8)
  1. SPIRIVA [Suspect]
     Indication: DYSPNOEA
     Dosage: 18 MCG
     Route: 055
     Dates: start: 2011
  2. ATORVASTATIN [Concomitant]
     Indication: BLOOD CHOLESTEROL INCREASED
     Route: 048
  3. CARVEDILOL [Concomitant]
     Route: 048
  4. FUROSEMIDE [Concomitant]
     Route: 048
  5. CLOPIDOGREL [Concomitant]
     Route: 048
  6. DIGOXIN [Concomitant]
     Route: 048
  7. WARFARIN [Concomitant]
     Route: 048
  8. RAMIPRIL [Concomitant]
     Route: 048

REACTIONS (6)
  - Myocardial infarction [Recovered/Resolved]
  - Dyspnoea [Unknown]
  - Product quality issue [Unknown]
  - Product quality issue [Unknown]
  - Cough [Not Recovered/Not Resolved]
  - Product quality issue [Not Recovered/Not Resolved]
